FAERS Safety Report 12949367 (Version 1)
Quarter: 2016Q4

REPORT INFORMATION
  Report Type: Spontaneous
  Country: US (occurrence: US)
  Receive Date: 20161116
  Receipt Date: 20161116
  Transmission Date: 20170207
  Serious: No
  Sender: FDA-Public Use
  Company Number: None

PATIENT
  Age: 56 Year
  Sex: Female
  Weight: 112.5 kg

DRUGS (13)
  1. PROBIOTIC [Concomitant]
     Active Substance: PROBIOTICS NOS
  2. LEVOXYL [Concomitant]
     Active Substance: LEVOTHYROXINE SODIUM
  3. BUTRANS [Concomitant]
     Active Substance: BUPRENORPHINE
  4. BELSOMRA [Concomitant]
     Active Substance: SUVOREXANT
  5. TIZANIDINE. [Concomitant]
     Active Substance: TIZANIDINE
  6. TRAMADOL. [Concomitant]
     Active Substance: TRAMADOL
  7. XANAX XR [Concomitant]
     Active Substance: ALPRAZOLAM
  8. NORVASC [Concomitant]
     Active Substance: AMLODIPINE BESYLATE
  9. MELATONIN [Concomitant]
     Active Substance: MELATONIN
  10. PRISTIQ EXTENDED-RELEASE [Suspect]
     Active Substance: DESVENLAFAXINE SUCCINATE
     Indication: DEPRESSION
     Dosage: QUANTITY:2 TABLET(S); ORAL?
     Route: 048
     Dates: start: 20160902, end: 20161114
  11. BIOTIN [Concomitant]
     Active Substance: BIOTIN
  12. ZYRTEC [Concomitant]
     Active Substance: CETIRIZINE HYDROCHLORIDE
  13. SINGULAIR [Concomitant]
     Active Substance: MONTELUKAST SODIUM

REACTIONS (4)
  - Oedema peripheral [None]
  - Dyspnoea [None]
  - Cough [None]
  - Oedema [None]

NARRATIVE: CASE EVENT DATE: 20161102
